FAERS Safety Report 10034061 (Version 2)
Quarter: 2014Q1

REPORT INFORMATION
  Report Type: Spontaneous
  Country: GB (occurrence: None)
  Receive Date: 20140320
  Receipt Date: 20140327
  Transmission Date: 20141002
  Serious: Yes (Other)
  Sender: FDA-Public Use
  Company Number: AUR-APL-2014-02982

PATIENT
  Age: 63 Year
  Sex: Female
  Weight: 111 kg

DRUGS (8)
  1. ALLOPURINOL [Suspect]
     Indication: GOUT
     Route: 048
     Dates: start: 20131206
  2. AMLODIPINE (AMLODIPINE) [Suspect]
     Indication: HYPERTENSION
     Route: 048
     Dates: start: 20130805
  3. BISOPROLOL [Suspect]
     Indication: HYPERTENSION
     Route: 048
     Dates: start: 20130807
  4. FUROSEMIDE (FUROSEMIDE) [Suspect]
     Indication: HYPERTENSION
     Route: 048
     Dates: start: 20130805
  5. RAMIPRIL (RAMIPRIL) [Suspect]
     Indication: HYPERTENSION
     Route: 048
     Dates: start: 20130806
  6. EPLERENONE [Suspect]
     Indication: HYPERTENSION
     Route: 048
     Dates: start: 20130805
  7. COLCHICINE  (COLCHICINE) [Concomitant]
  8. LEVOTHYROXINE (LEVOTHYROXINE) [Concomitant]

REACTIONS (15)
  - Cough [None]
  - Muscle spasms [None]
  - Muscle twitching [None]
  - Diarrhoea [None]
  - Dizziness [None]
  - Arthralgia [None]
  - Myalgia [None]
  - Asthenia [None]
  - Nausea [None]
  - Fatigue [None]
  - Nervous system disorder [None]
  - Medication error [None]
  - Feeling abnormal [None]
  - Contraindication to medical treatment [None]
  - Drug prescribing error [None]
